FAERS Safety Report 18916613 (Version 1)
Quarter: 2021Q1

REPORT INFORMATION
  Report Type: Spontaneous
  Country: JP (occurrence: JP)
  Receive Date: 20210219
  Receipt Date: 20210219
  Transmission Date: 20210420
  Serious: Yes (Other)
  Sender: FDA-Public Use
  Company Number: JP-BAYER-2020-279022

PATIENT
  Age: 60 Year
  Sex: Female

DRUGS (6)
  1. OPSUMIT [Suspect]
     Active Substance: MACITENTAN
     Indication: COLLAGEN DISORDER
     Dosage: DAILY DOSE 5 MG
  2. ADCIRCA [Suspect]
     Active Substance: TADALAFIL
     Indication: COLLAGEN DISORDER
     Dosage: DAILY DOSE 40 MG
  3. OPSUMIT [Suspect]
     Active Substance: MACITENTAN
     Indication: PULMONARY ARTERIAL HYPERTENSION
  4. ADEMPAS [Suspect]
     Active Substance: RIOCIGUAT
     Indication: PULMONARY ARTERIAL HYPERTENSION
     Dosage: DAILY DOSE 3 MG
     Route: 048
  5. ADEMPAS [Suspect]
     Active Substance: RIOCIGUAT
     Indication: COLLAGEN DISORDER
  6. ADCIRCA [Suspect]
     Active Substance: TADALAFIL
     Indication: PULMONARY ARTERIAL HYPERTENSION

REACTIONS (2)
  - Cardiac failure [Not Recovered/Not Resolved]
  - Physical deconditioning [Not Recovered/Not Resolved]
